FAERS Safety Report 21260824 (Version 1)
Quarter: 2022Q3

REPORT INFORMATION
  Report Type: Spontaneous
  Country: CA (occurrence: CA)
  Receive Date: 20220826
  Receipt Date: 20220826
  Transmission Date: 20221027
  Serious: Yes (Other)
  Sender: FDA-Public Use
  Company Number: None

PATIENT
  Age: 64 Year
  Sex: Female

DRUGS (8)
  1. FLUOROURACIL [Interacting]
     Active Substance: FLUOROURACIL
     Indication: Colorectal cancer metastatic
     Route: 065
  2. IRINOTECAN HYDROCHLORIDE [Interacting]
     Active Substance: IRINOTECAN HYDROCHLORIDE
     Indication: Colorectal cancer metastatic
     Route: 065
  3. LEUCOVORIN [Interacting]
     Active Substance: LEUCOVORIN
     Indication: Colorectal cancer metastatic
     Route: 065
  4. PHENYTOIN [Interacting]
     Active Substance: PHENYTOIN
     Indication: Epilepsy
     Dosage: 3 EVERY 1 DAYS
     Route: 048
  5. CALCIUM CARBONATE [Concomitant]
     Active Substance: CALCIUM CARBONATE
     Route: 048
  6. DOCUSATE SODIUM [Concomitant]
     Active Substance: DOCUSATE SODIUM
     Dosage: 2 EVERY 1 DAYS
     Route: 048
  7. ETIDRONIC ACID [Concomitant]
     Active Substance: ETIDRONIC ACID
     Route: 048
  8. VENLAFAXINE [Concomitant]
     Active Substance: VENLAFAXINE HYDROCHLORIDE
     Dosage: 1 EVERY 1 DAYS
     Route: 048

REACTIONS (7)
  - Anticonvulsant drug level increased [Recovered/Resolved]
  - Ataxia [Recovered/Resolved]
  - Dizziness [Recovered/Resolved]
  - Drug interaction [Unknown]
  - Hyperreflexia [Recovered/Resolved]
  - Somnolence [Recovered/Resolved]
  - Toxicity to various agents [Unknown]
